FAERS Safety Report 12722939 (Version 3)
Quarter: 2016Q3

REPORT INFORMATION
  Report Type: Spontaneous
  Country: PE (occurrence: PE)
  Receive Date: 20160908
  Receipt Date: 20160914
  Transmission Date: 20161109
  Serious: Yes (Hospitalization, Other)
  Sender: FDA-Public Use
  Company Number: PE-009507513-1512PER013963

PATIENT
  Age: 12 Year
  Sex: Male

DRUGS (3)
  1. SINGULAIR [Suspect]
     Active Substance: MONTELUKAST SODIUM
     Dosage: 4 MG, QD
     Route: 048
     Dates: start: 2004, end: 201506
  2. SINGULAIR [Suspect]
     Active Substance: MONTELUKAST SODIUM
     Indication: ASTHMA
     Dosage: 4 MG, QD
     Route: 048
     Dates: start: 20150223, end: 20151225
  3. SINGULAIR [Suspect]
     Active Substance: MONTELUKAST SODIUM
     Dosage: 4 MG, QD
     Route: 048
     Dates: start: 201601, end: 20160308

REACTIONS (5)
  - Nasopharyngitis [Not Recovered/Not Resolved]
  - Gastric infection [Unknown]
  - Drug prescribing error [Unknown]
  - Immune thrombocytopenic purpura [Recovered/Resolved]
  - Respiratory tract infection [Recovered/Resolved]

NARRATIVE: CASE EVENT DATE: 201505
